FAERS Safety Report 24151279 (Version 1)
Quarter: 2024Q3

REPORT INFORMATION
  Report Type: Spontaneous
  Country: US (occurrence: US)
  Receive Date: 20240730
  Receipt Date: 20240730
  Transmission Date: 20241017
  Serious: No
  Sender: GLENMARK
  Company Number: US-GLENMARK PHARMACEUTICALS-2023GMK086994

PATIENT

DRUGS (1)
  1. MUPIROCIN [Suspect]
     Active Substance: MUPIROCIN
     Indication: Antibiotic prophylaxis
     Dosage: UNK UNK, TID (THROUGH HIS NOSE THREE TIMES A DAY WHICH WAS MORNING, LUNCH, AND DINNER)
     Route: 045
     Dates: start: 20231109, end: 20231114

REACTIONS (4)
  - Cardiac valve disease [Unknown]
  - Product use in unapproved indication [Unknown]
  - Product use issue [Unknown]
  - Expired product administered [Unknown]
